FAERS Safety Report 19590743 (Version 1)
Quarter: 2021Q3

REPORT INFORMATION
  Report Type: Spontaneous
  Country: US (occurrence: US)
  Receive Date: 20210721
  Receipt Date: 20210721
  Transmission Date: 20211014
  Serious: No
  Sender: FDA-Public Use
  Company Number: US-SA-2021SA236455

PATIENT
  Age: 11 Year
  Sex: Female

DRUGS (1)
  1. DUPIXENT [Suspect]
     Active Substance: DUPILUMAB
     Indication: ASTHMA
     Dosage: 300 MG, QOW
     Route: 058
     Dates: start: 20210309

REACTIONS (8)
  - Product use issue [Unknown]
  - Infection [Not Recovered/Not Resolved]
  - Asthma [Not Recovered/Not Resolved]
  - Dizziness [Not Recovered/Not Resolved]
  - Product dose omission issue [Unknown]
  - Erythema [Not Recovered/Not Resolved]
  - Dyspnoea [Not Recovered/Not Resolved]
  - Impaired quality of life [Not Recovered/Not Resolved]

NARRATIVE: CASE EVENT DATE: 2021
